FAERS Safety Report 25814679 (Version 1)
Quarter: 2025Q3

REPORT INFORMATION
  Report Type: Spontaneous
  Country: CA (occurrence: CA)
  Receive Date: 20250917
  Receipt Date: 20250917
  Transmission Date: 20251021
  Serious: Yes (Hospitalization)
  Sender: ALEXION PHARMACEUTICALS
  Company Number: CA-AstraZeneca-CH-00949581A

PATIENT
  Sex: Female

DRUGS (1)
  1. LYNPARZA [Suspect]
     Active Substance: OLAPARIB
     Dosage: 150 MILLIGRAM, QD
     Route: 065

REACTIONS (14)
  - Heart rate increased [Unknown]
  - Malaise [Unknown]
  - Atrial fibrillation [Unknown]
  - Joint swelling [Unknown]
  - Nausea [Recovered/Resolved]
  - Confusional state [Unknown]
  - Peripheral venous disease [Unknown]
  - Heart rate decreased [Unknown]
  - Fatigue [Unknown]
  - Gait disturbance [Unknown]
  - Overweight [Unknown]
  - Lymphoedema [Unknown]
  - Drug intolerance [Unknown]
  - Oedema peripheral [Unknown]
